FAERS Safety Report 7269692 (Version 26)
Quarter: 2014Q3

REPORT INFORMATION
  Report Type: Report from Study
  Country: CA (occurrence: CA)
  Receive Date: 20100203
  Receipt Date: 20140725
  Transmission Date: 20150326
  Serious: Yes (Other)
  Sender: FDA-Public Use
  Company Number: PHHY2010CA03980

PATIENT
  Age: 66 Year
  Sex: Female

DRUGS (15)
  1. ADALAT CC [Concomitant]
     Active Substance: NIFEDIPINE
     Dosage: 30 MG, DAILY
  2. CABERGOLINE. [Concomitant]
     Active Substance: CABERGOLINE
     Dosage: 0.25 MG, 2 TIMES PER WEEK
  3. SANDOSTATIN LAR DEPOT [Suspect]
     Active Substance: OCTREOTIDE ACETATE
     Indication: ACROMEGALY
     Dosage: 30 MG, EVERY 4 WEEKS
     Route: 030
     Dates: start: 19990823
  4. METFORMINE [Concomitant]
     Active Substance: METFORMIN HYDROCHLORIDE
     Dosage: 850 MG, TID
  5. AAS [Concomitant]
     Active Substance: ASPIRIN
     Dosage: 20 MG, DAILY
  6. CABERGOLINE. [Concomitant]
     Active Substance: CABERGOLINE
     Dosage: 0.5 MG, 2 TIMES A WEEK
  7. SANDOSTATIN LAR DEPOT [Suspect]
     Active Substance: OCTREOTIDE ACETATE
     Dosage: 40 MG, EVERY 4 WEEKS
     Route: 030
  8. GLYBURIDE. [Concomitant]
     Active Substance: GLYBURIDE
     Dosage: 10 MG, UNK
  9. ACLON [Concomitant]
     Dosage: 30 MG, UNK
  10. RHOTRAL [Concomitant]
     Dosage: 400 MG, BID
  11. HYDROCHLOROTHIAZIDE. [Concomitant]
     Active Substance: HYDROCHLOROTHIAZIDE
     Dosage: 12.5 MG, DAILY
  12. ATARAX [Concomitant]
     Active Substance: HYDROXYZINE\HYDROXYZINE HYDROCHLORIDE
     Dosage: 150 MG, DAILY
  13. CRESTOR [Concomitant]
     Active Substance: ROSUVASTATIN CALCIUM
     Dosage: 10 MG, DAILY
  14. NUTRICAP [Concomitant]
     Indication: HAIR GROWTH ABNORMAL
     Dosage: UNK UKN, UNK
  15. CABERGOLINE. [Concomitant]
     Active Substance: CABERGOLINE
     Dosage: UNK UKN, UNK

REACTIONS (13)
  - Constipation [Unknown]
  - Nephrolithiasis [Unknown]
  - Blood urine present [Unknown]
  - Balance disorder [Unknown]
  - Fall [Unknown]
  - Angina pectoris [Unknown]
  - Pain [Unknown]
  - Blood pressure systolic increased [Unknown]
  - Oedema peripheral [Recovered/Resolved]
  - Heart rate decreased [Unknown]
  - Drug ineffective [Unknown]
  - Upper limb fracture [Unknown]
  - Arthralgia [Not Recovered/Not Resolved]

NARRATIVE: CASE EVENT DATE: 20070928
